FAERS Safety Report 16675209 (Version 2)
Quarter: 2019Q3

REPORT INFORMATION
  Report Type: Spontaneous
  Country: FR (occurrence: FR)
  Receive Date: 20190806
  Receipt Date: 20190812
  Transmission Date: 20191004
  Serious: Yes (Death, Other)
  Sender: FDA-Public Use
  Company Number: FR-MYLANLABS-2019M1073243

PATIENT
  Age: 42 Year
  Sex: Female

DRUGS (10)
  1. MITOXANTRONE [Suspect]
     Active Substance: MITOXANTRONE HYDROCHLORIDE
     Dosage: UNK, CONSOLIDATION CHEMOTHERAPIES MITOXANTRONE-CYTARABINE-ETOPOSIDE
     Dates: start: 1994, end: 1994
  2. MITOXANTRONE [Suspect]
     Active Substance: MITOXANTRONE HYDROCHLORIDE
     Indication: ACUTE MYELOID LEUKAEMIA
     Dosage: 12 MILLIGRAM/SQ. METER, QD (ON DAY 20 AND 21, DOUBLE INDUCTION CHEMOTHERAPY)
     Dates: start: 1993, end: 1993
  3. CYTARABINE. [Suspect]
     Active Substance: CYTARABINE
     Dosage: UNK, CONSOLIDATION CHEMOTHERAPIES CYTARABINE-AMSACRINE
     Dates: start: 1994, end: 1994
  4. CYTARABINE. [Suspect]
     Active Substance: CYTARABINE
     Dosage: 500 MILLIGRAM/SQ. METER, QD, ON DAYS 20-22, DOUBLE INDUCTION CHEMOTHERAPY
     Dates: start: 1993, end: 1993
  5. CYTARABINE. [Suspect]
     Active Substance: CYTARABINE
     Dosage: 200 MILLIGRAM/SQ. METER, QD(ON DAYS 1-7, DOUBLE INDUCTION CHEMOTHERAPY)
     Dates: start: 1993, end: 1993
  6. DAUNORUBICIN [Suspect]
     Active Substance: DAUNORUBICIN
     Dosage: 80 MILLIGRAM/SQ. METER, QD (ON DAYS 1-3, DOUBLE INDUCTION CHEMOTHERAPY)
     Dates: start: 1993, end: 1993
  7. DAUNORUBICIN [Suspect]
     Active Substance: DAUNORUBICIN
     Indication: ACUTE MYELOID LEUKAEMIA
     Dosage: UNK
  8. CYTARABINE. [Suspect]
     Active Substance: CYTARABINE
     Indication: ACUTE MYELOID LEUKAEMIA
     Dosage: U, CONSOLIDATION CHEMOTHERAPIES MITOXANTRONE-CYTARABINE-ETOPOSIDENK
     Dates: start: 1994, end: 1994
  9. AMSACRINE [Suspect]
     Active Substance: AMSACRINE
     Indication: ACUTE MYELOID LEUKAEMIA
     Dosage: (CONSOLIDATION CHEMOTHERAPIES CYTARABINE-AMSACRINE)UNK
     Dates: start: 1994, end: 1994
  10. ETOPOSIDE. [Suspect]
     Active Substance: ETOPOSIDE
     Indication: ACUTE MYELOID LEUKAEMIA
     Dosage: UNK, ONSOLIDATION CHEMOTHERAPY
     Dates: start: 1994, end: 1994

REACTIONS (2)
  - Precursor T-lymphoblastic lymphoma/leukaemia [Fatal]
  - Second primary malignancy [Fatal]

NARRATIVE: CASE EVENT DATE: 1994
